FAERS Safety Report 6954350-5 (Version None)
Quarter: 2010Q3

REPORT INFORMATION
  Report Type: 
  Country: None (occurrence: None)
  Receive Date: 20100829
  Receipt Date: 20100714
  Transmission Date: 20110219
  Serious: No
  Sender: FDA-Public Use
  Company Number: US-ABBOTT-10P-163-0657094-00

PATIENT
  Sex: Male
  Weight: 95.34 kg

DRUGS (14)
  1. NIASPAN [Suspect]
     Indication: BLOOD TRIGLYCERIDES INCREASED
     Dosage: AT BEDTIME
     Dates: start: 20100602, end: 20100607
  2. NIASPAN [Suspect]
     Dosage: AT BEDTIME
     Dates: start: 20100608, end: 20100613
  3. NIASPAN [Suspect]
     Dosage: AT BEDTIME
     Dates: start: 20100614
  4. LISINOPRIL [Concomitant]
     Indication: PRODUCT USED FOR UNKNOWN INDICATION
  5. FLUOXETINE [Concomitant]
     Indication: PRODUCT USED FOR UNKNOWN INDICATION
  6. METOPROLOL [Concomitant]
     Indication: PRODUCT USED FOR UNKNOWN INDICATION
  7. LOVAZA [Concomitant]
     Indication: PRODUCT USED FOR UNKNOWN INDICATION
  8. TOPIRAMATE [Concomitant]
     Indication: PRODUCT USED FOR UNKNOWN INDICATION
  9. AVODART [Concomitant]
     Indication: PRODUCT USED FOR UNKNOWN INDICATION
  10. CRESTOR [Concomitant]
     Indication: PRODUCT USED FOR UNKNOWN INDICATION
  11. NALTREXONE [Concomitant]
     Indication: PRODUCT USED FOR UNKNOWN INDICATION
  12. COL-Q [Concomitant]
     Indication: PRODUCT USED FOR UNKNOWN INDICATION
  13. ASPIRIN [Concomitant]
     Indication: PRODUCT USED FOR UNKNOWN INDICATION
  14. ALEVE (CAPLET) [Concomitant]
     Indication: PRODUCT USED FOR UNKNOWN INDICATION

REACTIONS (2)
  - BLOOD GLUCOSE INCREASED [None]
  - RASH [None]
